FAERS Safety Report 8185946-3 (Version None)
Quarter: 2012Q1

REPORT INFORMATION
  Report Type: 
  Country: None (occurrence: None)
  Receive Date: 20120305
  Receipt Date: 20120223
  Transmission Date: 20120608
  Serious: Yes (Other)
  Sender: FDA-Public Use
  Company Number: US-ASTRAZENECA-2012SE02709

PATIENT
  Age: 70 Year
  Sex: Female

DRUGS (3)
  1. PENTOXIFYLLINE [Concomitant]
  2. LISINOPRIL [Suspect]
     Route: 048
  3. ATACAND [Suspect]
     Route: 048

REACTIONS (6)
  - ARTERIAL OCCLUSIVE DISEASE [None]
  - MALAISE [None]
  - DRUG INTOLERANCE [None]
  - HYPERTENSION [None]
  - VISUAL IMPAIRMENT [None]
  - CEREBROVASCULAR ACCIDENT [None]
